FAERS Safety Report 8760705 (Version 1)
Quarter: 2012Q4

REPORT INFORMATION
  Report Type: 
  Country: US (occurrence: US)
  Receive Date: 20120830
  Receipt Date: 20120830
  Transmission Date: 20130627
  Serious: Yes (Other)
  Sender: FDA-Public Use
  Company Number: US-JNJFOC-20120812393

PATIENT
  Age: 11 Year
  Weight: 49.5 kg

DRUGS (2)
  1. DURAGESIC [Suspect]
     Indication: DRUG WITHDRAWAL SYNDROME
     Route: 062
  2. FENTANYL CITRATE [Suspect]
     Indication: PRODUCT USED FOR UNKNOWN INDICATION
     Route: 042

REACTIONS (3)
  - Drug withdrawal syndrome [Unknown]
  - Off label use [Unknown]
  - Wrong technique in drug usage process [Unknown]
